FAERS Safety Report 15568299 (Version 1)
Quarter: 2018Q4

REPORT INFORMATION
  Report Type: Spontaneous
  Country: RU (occurrence: RU)
  Receive Date: 20181031
  Receipt Date: 20181031
  Transmission Date: 20190205
  Serious: Yes (Death)
  Sender: FDA-Public Use
  Company Number: RU-ROCHE-2206335

PATIENT
  Age: 77 Year
  Sex: Female

DRUGS (2)
  1. OBINUTUZUMAB. [Suspect]
     Active Substance: OBINUTUZUMAB
     Indication: CHRONIC LYMPHOCYTIC LEUKAEMIA
     Dosage: UNKNOWN/1000 MG
     Route: 042
  2. LEUKERAN [Suspect]
     Active Substance: CHLORAMBUCIL
     Indication: CHRONIC LYMPHOCYTIC LEUKAEMIA
     Dosage: UNKNOWN/1000 MG
     Route: 065

REACTIONS (5)
  - Dyspnoea [Fatal]
  - Cytomegalovirus infection [Fatal]
  - Infusion site reaction [Fatal]
  - Myocardial infarction [Fatal]
  - Pruritus [Fatal]

NARRATIVE: CASE EVENT DATE: 20160412
